FAERS Safety Report 9681887 (Version 3)
Quarter: 2014Q1

REPORT INFORMATION
  Report Type: Spontaneous
  Country: DE (occurrence: DE)
  Receive Date: 20131111
  Receipt Date: 20140122
  Transmission Date: 20141002
  Serious: Yes (Death, Other)
  Sender: FDA-Public Use
  Company Number: DE-CELGENEUS-062-POMAL-13103812

PATIENT
  Age: 67 Year
  Sex: Male

DRUGS (12)
  1. IMNOVID [Suspect]
     Indication: PLASMA CELL MYELOMA
     Dosage: 4 MILLIGRAM
     Route: 048
     Dates: start: 20130911, end: 20130916
  2. DEXAMETHASONE [Concomitant]
     Indication: PLASMA CELL MYELOMA
     Route: 065
     Dates: start: 200904, end: 200907
  3. DEXAMETHASONE [Concomitant]
     Route: 065
     Dates: start: 201008, end: 201010
  4. DEXAMETHASONE [Concomitant]
     Route: 065
     Dates: start: 201012, end: 201301
  5. DEXAMETHASONE [Concomitant]
     Route: 065
     Dates: start: 201302, end: 201306
  6. DEXAMETHASONE [Concomitant]
     Route: 065
     Dates: start: 201305, end: 201308
  7. DEXAMETHASONE [Concomitant]
     Route: 065
     Dates: start: 20130911
  8. ASA [Concomitant]
     Indication: CORONARY ARTERY DISEASE
     Route: 048
  9. TARGIN [Concomitant]
     Indication: PAIN
     Dosage: 10/5
     Route: 048
  10. METOPROLOL [Concomitant]
     Indication: CORONARY ARTERY DISEASE
     Dosage: 23 MILLIGRAM
     Route: 048
  11. OMEPRAZOLE [Concomitant]
     Indication: GASTROOESOPHAGEAL REFLUX DISEASE
     Dosage: 20 MILLIGRAM
     Route: 048
  12. PRIVIGEN [Concomitant]
     Indication: PRODUCT USED FOR UNKNOWN INDICATION
     Route: 065
     Dates: start: 201301

REACTIONS (4)
  - Staphylococcal sepsis [Fatal]
  - Pleural effusion [Fatal]
  - Pericardial effusion [Fatal]
  - Pneumonia [Fatal]
